FAERS Safety Report 5460763-3 (Version None)
Quarter: 2007Q3

REPORT INFORMATION
  Report Type: 
  Country: None (occurrence: None)
  Receive Date: 20070918
  Receipt Date: 20070903
  Transmission Date: 20080115
  Serious: Yes (Hospitalization, Other)
  Sender: FDA-Public Use
  Company Number: STI-2007-01444

PATIENT
  Age: 42 Year
  Sex: Male

DRUGS (4)
  1. BETAMETHASONE [Suspect]
     Indication: DERMATITIS ATOPIC
     Dosage: ABOUT TWICE A WEEK TOPICAL
     Route: 061
  2. BETAMETHASONE [Suspect]
     Indication: DERMATITIS ATOPIC
     Dosage: ABOUT TWICE A WEEK
  3. BETAMETHASONE [Suspect]
     Indication: DERMATITIS ATOPIC
     Dosage: ABOUT TWICE A WEEK
  4. HYDROCORTISONE [Suspect]
     Indication: DERMATITIS ATOPIC
     Dosage: ABOUT TWICE A WEEK

REACTIONS (1)
  - GLAUCOMA [None]
